FAERS Safety Report 20764367 (Version 1)
Quarter: 2022Q2

REPORT INFORMATION
  Report Type: Spontaneous
  Country: US (occurrence: US)
  Receive Date: 20220428
  Receipt Date: 20220428
  Transmission Date: 20220721
  Serious: No
  Sender: FDA-Public Use
  Company Number: US-PFIZER INC-202200391184

PATIENT
  Age: 75 Year
  Sex: Female

DRUGS (1)
  1. IBRANCE [Suspect]
     Active Substance: PALBOCICLIB
     Dosage: UNK
     Dates: start: 20200324

REACTIONS (7)
  - Haemoglobin decreased [Unknown]
  - Blood test abnormal [Unknown]
  - Nail disorder [Unknown]
  - Alopecia [Unknown]
  - Stomatitis [Unknown]
  - Increased tendency to bruise [Unknown]
  - Myalgia [Unknown]
